FAERS Safety Report 11537788 (Version 1)
Quarter: 2015Q3

REPORT INFORMATION
  Report Type: Spontaneous
  Country: GB (occurrence: GB)
  Receive Date: 20150922
  Receipt Date: 20150922
  Transmission Date: 20151125
  Serious: Yes (Other)
  Sender: FDA-Public Use
  Company Number: GB-AKORN PHARMACEUTICALS-2015AKN00514

PATIENT
  Age: 35 Year
  Sex: Male

DRUGS (2)
  1. ISOTRETINOIN [Suspect]
     Active Substance: ISOTRETINOIN
     Dosage: DOWN-TITRATED TO 20 MG/D
     Route: 048
  2. ISOTRETINOIN [Suspect]
     Active Substance: ISOTRETINOIN
     Indication: ACNE CYSTIC
     Dosage: 4 COURSES AT 500 ?G/KG/DAY FOR 6 MONTHS
     Route: 048

REACTIONS (2)
  - Exostosis [Recovering/Resolving]
  - Mood altered [Unknown]
